FAERS Safety Report 8326178-5 (Version None)
Quarter: 2012Q2

REPORT INFORMATION
  Report Type: 
  Country: None (occurrence: None)
  Receive Date: 20120427
  Receipt Date: 20120412
  Transmission Date: 20120825
  Serious: Yes (Hospitalization, Other)
  Sender: FDA-Public Use
  Company Number: 2012MA005020

PATIENT
  Age: 54 Year
  Sex: Male

DRUGS (2)
  1. GEMCITABINE HYDROCHLORIDE [Suspect]
     Indication: ADENOCARCINOMA
     Dosage: 600 MG/M**2;QW;IV
     Route: 042
  2. DOCETAXEL [Suspect]
     Indication: ADENOCARCINOMA
     Dosage: 60 MG/M**2;Q3W;IV
     Route: 042

REACTIONS (3)
  - RECALL PHENOMENON [None]
  - CENTRAL NERVOUS SYSTEM NECROSIS [None]
  - RADIATION NECROSIS [None]
